FAERS Safety Report 7731129-8 (Version None)
Quarter: 2011Q3

REPORT INFORMATION
  Report Type: 
  Country: None (occurrence: None)
  Receive Date: 20110906
  Receipt Date: 20110906
  Transmission Date: 20111222
  Serious: No
  Sender: FDA-Public Use
  Company Number: None

PATIENT
  Age: 2 Year
  Sex: Male
  Weight: 12.246 kg

DRUGS (2)
  1. VENTOLIN HFA [Suspect]
     Indication: RESPIRATORY TRACT INFECTION
     Dosage: INHALATION
     Route: 048
     Dates: start: 20100601, end: 20110315
  2. VENTOLIN HFA [Suspect]
     Indication: ASTHMA
     Dosage: INHALATION
     Route: 048
     Dates: start: 20100601, end: 20110315

REACTIONS (1)
  - CATARACT [None]
